FAERS Safety Report 6091171-2 (Version None)
Quarter: 2009Q1

REPORT INFORMATION
  Report Type: 
  Country: None (occurrence: None)
  Receive Date: 20090225
  Receipt Date: 20090213
  Transmission Date: 20090719
  Serious: Yes (Hospitalization, Other)
  Sender: FDA-Public Use
  Company Number: ES-PFIZER INC-2009165121

PATIENT

DRUGS (2)
  1. SUTENT [Suspect]
     Indication: RENAL CANCER METASTATIC
     Dosage: 50 MG, 1X/DAY
     Route: 048
     Dates: start: 20081111, end: 20081211
  2. SUTENT [Suspect]
     Indication: METASTASES TO LUNG

REACTIONS (1)
  - EMPHYSEMATOUS CHOLECYSTITIS [None]
